FAERS Safety Report 6347614-X (Version None)
Quarter: 2009Q3

REPORT INFORMATION
  Report Type: 
  Country: None (occurrence: None)
  Receive Date: 20090910
  Receipt Date: 20090813
  Transmission Date: 20100115
  Serious: No
  Sender: FDA-Public Use
  Company Number: US-BAYER-200913423BCC

PATIENT
  Age: 53 Year
  Sex: Male
  Weight: 73 kg

DRUGS (5)
  1. ALEVE [Suspect]
     Indication: INTERVERTEBRAL DISC DEGENERATION
     Dosage: TOTAL DAILY DOSE: 220 MG  UNIT DOSE: 220 MG
     Route: 048
     Dates: start: 20090812
  2. ALBUTEROL INHIBITOR [Concomitant]
     Route: 065
  3. PRILOSEC OTC [Concomitant]
     Route: 065
  4. RANITIDINE [Concomitant]
     Route: 065
  5. BEANO [Concomitant]
     Route: 065

REACTIONS (1)
  - ABDOMINAL DISCOMFORT [None]
